FAERS Safety Report 12469993 (Version 2)
Quarter: 2016Q2

REPORT INFORMATION
  Report Type: Report from Study
  Country: US (occurrence: US)
  Receive Date: 20160615
  Receipt Date: 20160627
  Transmission Date: 20160815
  Serious: No
  Sender: FDA-Public Use
  Company Number: US-AMGEN-USASL2016074189

PATIENT
  Age: 13 Year
  Sex: Male

DRUGS (1)
  1. ENBREL [Suspect]
     Active Substance: ETANERCEPT
     Indication: JUVENILE IDIOPATHIC ARTHRITIS
     Dosage: 25 MG, ONCE A WEEK
     Route: 065
     Dates: start: 20160527

REACTIONS (7)
  - Oropharyngeal pain [Unknown]
  - Feeling abnormal [Unknown]
  - Respiratory disorder [Unknown]
  - Cough [Unknown]
  - Headache [Unknown]
  - Sputum discoloured [Unknown]
  - Fatigue [Unknown]

NARRATIVE: CASE EVENT DATE: 2016
